FAERS Safety Report 17779081 (Version 3)
Quarter: 2020Q2

REPORT INFORMATION
  Report Type: Report from Study
  Country: US (occurrence: US)
  Receive Date: 20200513
  Receipt Date: 20200625
  Transmission Date: 20200714
  Serious: Yes (Death, Life-Threatening, Hospitalization, Congenital Anomaly, Other)
  Sender: FDA-Public Use
  Company Number: US-SA-2020SA100372

PATIENT

DRUGS (19)
  1. ACETAMINOPHEN. [Concomitant]
     Active Substance: ACETAMINOPHEN
     Indication: PYREXIA
     Dosage: 975 MG, 1X
     Route: 048
     Dates: start: 20200405, end: 20200405
  2. AZITHROMYCIN ANHYDROUS. [Concomitant]
     Active Substance: AZITHROMYCIN ANHYDROUS
     Dosage: 500 MG, QD
     Route: 048
     Dates: start: 20200405, end: 20200406
  3. METHYLPREDNISOLONE [METHYLPREDNISOLONE ACETATE] [Concomitant]
     Active Substance: METHYLPREDNISOLONE ACETATE
     Dosage: UNK
  4. SARILUMAB [Suspect]
     Active Substance: SARILUMAB
     Dosage: 200 MG, SINGLE
     Route: 042
     Dates: start: 20200410, end: 20200410
  5. HYDROXYCHLOROQUINE [Concomitant]
     Active Substance: HYDROXYCHLOROQUINE
     Indication: COVID-19
     Dosage: 400 MG, QD
     Route: 048
     Dates: start: 20200407, end: 20200410
  6. CEFTRIAXONE. [Concomitant]
     Active Substance: CEFTRIAXONE
     Indication: COVID-19 PNEUMONIA
     Dosage: 500 MG, QD
     Dates: start: 20200405, end: 20200406
  7. FENTANYL [FENTANYL CITRATE] [Concomitant]
     Active Substance: FENTANYL CITRATE
     Indication: SEDATION
     Dosage: 100 UG, SINGLE
     Route: 042
     Dates: start: 20200409, end: 20200409
  8. CEFPODOXIME [Concomitant]
     Active Substance: CEFPODOXIME
     Indication: COVID-19 PNEUMONIA
     Dosage: 200 MG, BID
     Route: 048
     Dates: start: 20200407, end: 20200408
  9. VANCOMYCIN [Concomitant]
     Active Substance: VANCOMYCIN
     Dosage: 1000 MG, BID
     Route: 042
     Dates: start: 20200423, end: 20200423
  10. CEFTRIAXONE. [Concomitant]
     Active Substance: CEFTRIAXONE
     Dosage: 1000 MG, QD
     Route: 042
     Dates: start: 20200408, end: 20200412
  11. FENTANYL [FENTANYL CITRATE] [Concomitant]
     Active Substance: FENTANYL CITRATE
     Dosage: 25-250MCG/HR
     Route: 042
     Dates: start: 20200409
  12. VANCOMYCIN [Concomitant]
     Active Substance: VANCOMYCIN
     Indication: COVID-19 PNEUMONIA
     Dosage: 1000 MG, TID
     Route: 042
     Dates: start: 20200422, end: 20200423
  13. ACETAMINOPHEN. [Concomitant]
     Active Substance: ACETAMINOPHEN
     Dosage: 650 MG, PRN
     Route: 048
     Dates: start: 20200407, end: 20200423
  14. AZITHROMYCIN ANHYDROUS. [Concomitant]
     Active Substance: AZITHROMYCIN ANHYDROUS
     Indication: COVID-19 PNEUMONIA
     Dosage: 250 MG, PRN
     Route: 048
     Dates: start: 20200407, end: 20200410
  15. CEFTRIAXONE. [Concomitant]
     Active Substance: CEFTRIAXONE
     Dosage: 1000 MG, QD
     Route: 042
     Dates: start: 20200405, end: 20200405
  16. SARILUMAB [Suspect]
     Active Substance: SARILUMAB
     Indication: COVID-19
     Dosage: 200 MG, SINGLE
     Route: 042
     Dates: start: 20200407, end: 20200407
  17. SARILUMAB [Suspect]
     Active Substance: SARILUMAB
     Dosage: 200 MG, SINGLE
     Route: 042
     Dates: start: 20200416, end: 20200416
  18. METHYLPREDNISOLONE [METHYLPREDNISOLONE ACETATE] [Concomitant]
     Active Substance: METHYLPREDNISOLONE ACETATE
     Indication: INFLAMMATION
     Dosage: 80 MG, SINGLE
     Route: 042
     Dates: start: 20200419, end: 20200419
  19. METHYLPREDNISOLONE [METHYLPREDNISOLONE ACETATE] [Concomitant]
     Active Substance: METHYLPREDNISOLONE ACETATE
     Dosage: 40 MG, BID
     Route: 042
     Dates: start: 20200423, end: 20200427

REACTIONS (12)
  - Urinary tract infection [Unknown]
  - Pneumonia bacterial [Not Recovered/Not Resolved]
  - COVID-19 [Fatal]
  - Metabolic encephalopathy [Unknown]
  - Alanine aminotransferase increased [Not Recovered/Not Resolved]
  - Aspartate aminotransferase increased [Not Recovered/Not Resolved]
  - Acute kidney injury [Not Recovered/Not Resolved]
  - Hypotension [Recovered/Resolved]
  - Hepatic failure [Not Recovered/Not Resolved]
  - Renal failure [Unknown]
  - Hypotension [Unknown]
  - Deep vein thrombosis [Not Recovered/Not Resolved]

NARRATIVE: CASE EVENT DATE: 20200411
